FAERS Safety Report 9690761 (Version 1)
Quarter: 2013Q4

REPORT INFORMATION
  Report Type: Spontaneous
  Country: US (occurrence: None)
  Receive Date: 20131114
  Receipt Date: 20131114
  Transmission Date: 20140711
  Serious: No
  Sender: FDA-Public Use
  Company Number: None

PATIENT
  Age: 44 Year
  Sex: Female
  Weight: 67.13 kg

DRUGS (2)
  1. CYMBALTA 60MG [Suspect]
     Indication: ANXIETY
     Dosage: 1 PILL
     Route: 048
  2. CYMBALTA 60MG [Suspect]
     Indication: DEPRESSION
     Dosage: 1 PILL
     Route: 048

REACTIONS (3)
  - Pain in extremity [None]
  - Hyperhidrosis [None]
  - Rectal haemorrhage [None]
